FAERS Safety Report 15630692 (Version 2)
Quarter: 2019Q1

REPORT INFORMATION
  Report Type: Spontaneous
  Country: US (occurrence: US)
  Receive Date: 20181119
  Receipt Date: 20190307
  Transmission Date: 20190417
  Serious: Yes (Other)
  Sender: FDA-Public Use
  Company Number: US-009507513-1811USA005868

PATIENT
  Age: 35 Year
  Sex: Female
  Weight: 106.58 kg

DRUGS (1)
  1. NEXPLANON [Suspect]
     Active Substance: ETONOGESTREL
     Dosage: 68 MILLIGRAM
     Route: 059
     Dates: start: 20160926

REACTIONS (4)
  - Recalled product administered [Unknown]
  - Arthralgia [Not Recovered/Not Resolved]
  - Intracranial pressure increased [Not Recovered/Not Resolved]
  - Hypoaesthesia [Not Recovered/Not Resolved]

NARRATIVE: CASE EVENT DATE: 20160926
